FAERS Safety Report 6105981-6 (Version None)
Quarter: 2009Q1

REPORT INFORMATION
  Report Type: 
  Country: None (occurrence: None)
  Receive Date: 20090306
  Receipt Date: 20080915
  Transmission Date: 20090719
  Serious: Yes (Other)
  Sender: FDA-Public Use
  Company Number: US-BRISTOL-MYERS SQUIBB COMPANY-14335897

PATIENT
  Age: 6 Decade
  Sex: Male

DRUGS (3)
  1. ERBITUX [Suspect]
     Indication: HEAD AND NECK CANCER
  2. CARBOPLATIN [Suspect]
     Indication: HEAD AND NECK CANCER
  3. TAXOL [Suspect]
     Indication: HEAD AND NECK CANCER

REACTIONS (1)
  - ANAPHYLACTOID REACTION [None]
